FAERS Safety Report 10269735 (Version 6)
Quarter: 2014Q3

REPORT INFORMATION
  Report Type: Spontaneous
  Country: IT (occurrence: None)
  Receive Date: 20140625
  Receipt Date: 20140819
  Transmission Date: 20150326
  Serious: Yes (Hospitalization, Other)
  Sender: FDA-Public Use
  Company Number: AUR-APL-2014-06566

PATIENT
  Age: 63 Year
  Sex: Male

DRUGS (11)
  1. LANSOX (LANSOPRAZOLE) [Concomitant]
     Active Substance: LANSOPRAZOLE
  2. CARDIOASPIRIN [Concomitant]
     Active Substance: ASPIRIN
  3. TOTALIP [Concomitant]
     Active Substance: ATORVASTATIN
  4. ESKIM [Concomitant]
  5. CLOZAPINE (CLOZAPINE) [Concomitant]
     Active Substance: CLOZAPINE
  6. CORLENTOR [Suspect]
     Active Substance: IVABRADINE HYDROCHLORIDE
     Indication: HYPERTENSION
     Route: 048
     Dates: start: 20140101, end: 20140510
  7. VANTAVO [Concomitant]
     Active Substance: ALENDRONATE SODIUM\CHOLECALCIFEROL
  8. RAMIPRIL. [Suspect]
     Active Substance: RAMIPRIL
     Indication: HYPERTENSION
     Route: 048
     Dates: start: 20140101, end: 20140510
  9. BISOPROLOL [Suspect]
     Active Substance: BISOPROLOL
     Indication: HYPERTENSION
     Route: 048
     Dates: start: 20140101, end: 20140510
  10. LUVION [Suspect]
     Active Substance: CANRENONE
     Indication: HYPERTENSION
     Route: 048
     Dates: start: 20140101, end: 20140510
  11. FUROSEMIDE. [Suspect]
     Active Substance: FUROSEMIDE
     Indication: HYPERTENSION
     Route: 048
     Dates: start: 20140101, end: 20140510

REACTIONS (11)
  - Vertigo [None]
  - Cerebrovascular accident [None]
  - Hypotension [None]
  - Disorientation [None]
  - Insomnia [None]
  - Drug interaction [None]
  - Feeling abnormal [None]
  - Disease recurrence [None]
  - Syncope [None]
  - Bradycardia [None]
  - Orthostatic hypotension [None]

NARRATIVE: CASE EVENT DATE: 20140510
